FAERS Safety Report 6425249-8 (Version None)
Quarter: 2009Q4

REPORT INFORMATION
  Report Type: 
  Country: None (occurrence: None)
  Receive Date: 20091103
  Receipt Date: 20091028
  Transmission Date: 20100525
  Serious: Yes (Other)
  Sender: FDA-Public Use
  Company Number: DE-CVT-090720

PATIENT

DRUGS (1)
  1. RANEXA [Suspect]
     Indication: ANGINA PECTORIS
     Dosage: 1000 MG, QD
     Route: 048
     Dates: start: 20090801, end: 20090101

REACTIONS (1)
  - SYNCOPE [None]
